FAERS Safety Report 6703561-2 (Version None)
Quarter: 2010Q2

REPORT INFORMATION
  Report Type: 
  Country: None (occurrence: None)
  Receive Date: 20100430
  Receipt Date: 20100419
  Transmission Date: 20101027
  Serious: Yes (Other)
  Sender: FDA-Public Use
  Company Number: US-PFIZER INC-2010041961

PATIENT
  Sex: Male
  Weight: 111 kg

DRUGS (14)
  1. VIAGRA [Suspect]
     Indication: ERECTILE DYSFUNCTION
     Dosage: 100 MG, AS NEEDED
  2. VIAGRA [Suspect]
     Dosage: 50 MG, AS NEEDED
  3. NEXIUM [Concomitant]
     Dosage: 40 MG, UNK
  4. LOTREL [Concomitant]
     Dosage: UNK
     Route: 048
  5. ATENOLOL [Concomitant]
     Dosage: 100 MG, 1X/DAY
  6. ACTOS [Concomitant]
     Dosage: 30 MG, 1X/DAY
  7. HYDROCHLOROTHIAZIDE [Concomitant]
     Dosage: 25 MG, 1X/DAY
  8. PRAVASTATIN [Concomitant]
     Dosage: 20 MG, 2X/DAY
  9. ACETYLSALICYLIC ACID [Concomitant]
     Dosage: 81 MG, 1X/DAY
  10. INDOCIN [Concomitant]
     Dosage: 50 MG, 3X/DAY
  11. GABAPENTIN [Concomitant]
     Dosage: 300 MG, 1X/DAY
  12. COLACE [Concomitant]
     Dosage: 100 MG, 1X/DAY
  13. ALLEGRA [Concomitant]
     Dosage: 180 MG, 1X/DAY
  14. ADVIL [Concomitant]
     Dosage: 1 CAPSULE EVERY 4 TO 6 HOURS./

REACTIONS (6)
  - ANDROGEN INSENSITIVITY SYNDROME [None]
  - BENIGN PROSTATIC HYPERPLASIA [None]
  - BLOOD DISORDER [None]
  - DRUG INEFFECTIVE [None]
  - JOINT SPRAIN [None]
  - POLLAKIURIA [None]
